FAERS Safety Report 9316751 (Version 2)
Quarter: 2013Q3

REPORT INFORMATION
  Report Type: Spontaneous
  Country: US (occurrence: None)
  Receive Date: 20130522
  Receipt Date: 20130816
  Transmission Date: 20140515
  Serious: Yes (Death)
  Sender: FDA-Public Use
  Company Number: UTC-032832

PATIENT
  Age: 78 Year
  Sex: Male
  Weight: 61.81 kg

DRUGS (2)
  1. REMODULIN (10 MILLIGRAM/MILLILITERS, INJECTION FOR INFUSION) (TREPROSTINIL SODIUM) [Suspect]
     Indication: PULMONARY HYPERTENSION
     Dosage: 125.28 UG/KG (0.087 UG/KG, 1 IN 1 MIN?, SUBCUTANEOUS
     Dates: start: 20100730
  2. REVATIO (SILDENAFIL CITRATE) (UNKNOWN) (SILDENAFIL) [Concomitant]

REACTIONS (3)
  - Death [None]
  - Pulmonary fibrosis [None]
  - Condition aggravated [None]
